FAERS Safety Report 16052936 (Version 1)
Quarter: 2019Q1

REPORT INFORMATION
  Report Type: Spontaneous
  Country: AT (occurrence: AT)
  Receive Date: 20190308
  Receipt Date: 20190308
  Transmission Date: 20190418
  Serious: Yes (Other)
  Sender: FDA-Public Use
  Company Number: AT-TOLMAR, INC.-TOLG20190125

PATIENT
  Age: 58 Year
  Sex: Male

DRUGS (4)
  1. APREDNISLON [Concomitant]
     Active Substance: PREDNISOLONE
     Indication: IMMUNOSUPPRESSION
     Dosage: 10 MG
     Route: 065
     Dates: end: 201611
  2. IMIQUIMOD. [Suspect]
     Active Substance: IMIQUIMOD
     Indication: MALIGNANT MELANOMA STAGE III
     Dosage: UNKNOWN
     Route: 061
     Dates: start: 201603, end: 201611
  3. MYCOPHENOLAT MOFETIL [Concomitant]
     Active Substance: MYCOPHENOLATE MOFETIL
     Indication: IMMUNOSUPPRESSION
     Dosage: 2 G
     Route: 065
  4. TACROLIMUS. [Concomitant]
     Active Substance: TACROLIMUS
     Indication: IMMUNOSUPPRESSION
     Dosage: 7.5 MG
     Route: 065
     Dates: end: 201611

REACTIONS (2)
  - Product use in unapproved indication [None]
  - Malignant neoplasm progression [Recovered/Resolved]
